FAERS Safety Report 6498189-6 (Version None)
Quarter: 2009Q4

REPORT INFORMATION
  Report Type: 
  Country: None (occurrence: None)
  Receive Date: 20091125
  Receipt Date: 20090123
  Transmission Date: 20100525
  Serious: Yes (Other)
  Sender: FDA-Public Use
  Company Number: 2009BH001295

PATIENT
  Age: 32 Year
  Sex: Female

DRUGS (9)
  1. DIANEAL [Suspect]
     Indication: RENAL FAILURE CHRONIC
     Dosage: 13.4 L; EVERY DAY; IP
     Route: 033
     Dates: start: 20051027
  2. HEPARIN [Concomitant]
  3. EPOGEN [Concomitant]
  4. POTASSIUM CHLORIDE [Concomitant]
  5. PHOSLO [Concomitant]
  6. MAGNABIND [Concomitant]
  7. ROCALTROL [Concomitant]
  8. FLINTSTONES [Concomitant]
  9. GENTAMICIN [Concomitant]

REACTIONS (1)
  - PERITONITIS BACTERIAL [None]
